FAERS Safety Report 6679481-9 (Version None)
Quarter: 2010Q2

REPORT INFORMATION
  Report Type: 
  Country: None (occurrence: None)
  Receive Date: 20100413
  Receipt Date: 20100331
  Transmission Date: 20101027
  Serious: Yes (Other)
  Sender: FDA-Public Use
  Company Number: PHEH2006US01235

PATIENT
  Sex: Female
  Weight: 75.283 kg

DRUGS (30)
  1. ZOMETA [Suspect]
     Dosage: 4 MG IV Q3MOS
     Dates: start: 20031118, end: 20050201
  2. AREDIA [Suspect]
     Dosage: UNK, UNK
  3. ZOLOFT [Concomitant]
     Dosage: UNK, UNK
  4. CYCLOBENZAPRINE HYDROCHLORIDE [Concomitant]
  5. ALPRAZOLAM [Concomitant]
  6. ACETAMINOPHEN AND HYDROCODONE BITARTRATE [Concomitant]
  7. CIPROFLOXACIN [Concomitant]
  8. ERYTHROMYCIN [Concomitant]
  9. VENLAFAXINE HYDROCHLORIDE [Concomitant]
  10. LORAZEPAM [Concomitant]
  11. ZOFRAN [Concomitant]
  12. DECADRON [Concomitant]
  13. COMPAZINE [Concomitant]
  14. ORUVAIL [Concomitant]
  15. AMITRIPTYLINE HYDROCHLORIDE [Concomitant]
  16. XANAX [Concomitant]
  17. NOLVADEX [Concomitant]
  18. VIOXX [Concomitant]
  19. PREVACID [Concomitant]
  20. EFFEXOR XR [Concomitant]
  21. FLEXERIL [Concomitant]
  22. HYDROCHLOROTHIAZIDE [Concomitant]
  23. IBUPROFEN [Concomitant]
  24. NEURONTIN [Concomitant]
  25. OYSTER SHELL CALCIUM WITH VITAMIN D [Concomitant]
  26. DALTEPARIN [Concomitant]
  27. PROTONIX [Concomitant]
  28. REGLAN [Concomitant]
  29. PHENERGAN ^AVENTIS PHARMA^ [Concomitant]
  30. PANNAZ [Concomitant]

REACTIONS (20)
  - ALVEOLAR OSTEITIS [None]
  - ANXIETY [None]
  - BONE DEBRIDEMENT [None]
  - BONE DISORDER [None]
  - BONE FORMATION DECREASED [None]
  - BONE FRAGMENTATION [None]
  - CHEST PAIN [None]
  - DEPRESSION [None]
  - GASTROOESOPHAGEAL REFLUX DISEASE [None]
  - HERPES ZOSTER [None]
  - IMPAIRED HEALING [None]
  - MALIGNANT NEOPLASM PROGRESSION [None]
  - NEOPLASM SKIN [None]
  - ORAL DISCHARGE [None]
  - ORAL SURGERY [None]
  - OSTEONECROSIS [None]
  - PAIN [None]
  - PRIMARY SEQUESTRUM [None]
  - ROTATOR CUFF SYNDROME [None]
  - TOOTH EXTRACTION [None]
